FAERS Safety Report 11618677 (Version 1)
Quarter: 2015Q4

REPORT INFORMATION
  Report Type: Spontaneous
  Country: BR (occurrence: BR)
  Receive Date: 20151012
  Receipt Date: 20151012
  Transmission Date: 20160304
  Serious: Yes (Hospitalization)
  Sender: FDA-Public Use
  Company Number: BR-ACCORD-034356

PATIENT
  Age: 65 Year
  Sex: Male

DRUGS (2)
  1. RIVAROXABAN [Suspect]
     Active Substance: RIVAROXABAN
     Indication: SUPERIOR VENA CAVA SYNDROME
     Dosage: RECEIVED FOR OVER A YEAR
  2. CLOPIDOGREL [Suspect]
     Active Substance: CLOPIDOGREL BISULFATE
     Indication: SUPERIOR VENA CAVA SYNDROME
     Dosage: RECEIVED FOR OVER A YEAR

REACTIONS (1)
  - Drug ineffective [Unknown]
